FAERS Safety Report 5574423-1 (Version None)
Quarter: 2007Q4

REPORT INFORMATION
  Report Type: 
  Country: None (occurrence: None)
  Receive Date: 20071226
  Receipt Date: 20071226
  Transmission Date: 20080405
  Serious: Yes (Disabling)
  Sender: FDA-Public Use
  Company Number: None

PATIENT
  Age: 51 Year
  Sex: Male

DRUGS (2)
  1. CEFTRIAXONE [Suspect]
     Indication: BETA HAEMOLYTIC STREPTOCOCCAL INFECTION
     Dosage: 2GM EVERY DAY IV
     Route: 042
     Dates: start: 20071205, end: 20071210
  2. CEFTRIAXONE [Suspect]
     Indication: STREPTOCOCCAL BACTERAEMIA
     Dosage: 2GM EVERY DAY IV
     Route: 042
     Dates: start: 20071205, end: 20071210

REACTIONS (3)
  - BLOOD BILIRUBIN INCREASED [None]
  - HEPATIC ENZYME INCREASED [None]
  - JAUNDICE [None]
